FAERS Safety Report 6723413-1 (Version None)
Quarter: 2010Q2

REPORT INFORMATION
  Report Type: 
  Country: None (occurrence: None)
  Receive Date: 20100513
  Receipt Date: 20100430
  Transmission Date: 20101027
  Serious: Yes (Hospitalization)
  Sender: FDA-Public Use
  Company Number: PHHY2010FR28110

PATIENT
  Sex: Female

DRUGS (2)
  1. ZOMETA [Suspect]
     Indication: METASTASES TO BONE
     Dosage: 2.2 MG
     Dates: start: 20100130
  2. HOLOXAN [Suspect]
     Indication: OSTEOSARCOMA METASTATIC
     Dosage: 7.8 GM
     Dates: start: 20100203

REACTIONS (8)
  - BLOOD PHOSPHORUS DECREASED [None]
  - HYPERCALCIURIA [None]
  - HYPERPHOSPHATURIA [None]
  - HYPOCALCAEMIA [None]
  - HYPOKALAEMIA [None]
  - HYPONATRAEMIA [None]
  - HYPOPHOSPHATAEMIA [None]
  - RENAL TUBULAR DISORDER [None]
